FAERS Safety Report 6011016-6 (Version None)
Quarter: 2008Q4

REPORT INFORMATION
  Report Type: 
  Country: None (occurrence: None)
  Receive Date: 20081218
  Receipt Date: 20081210
  Transmission Date: 20090506
  Serious: Yes (Hospitalization)
  Sender: FDA-Public Use
  Company Number: Z0000625A

PATIENT
  Age: 67 Year
  Sex: Male
  Weight: 104 kg

DRUGS (2)
  1. TOPOTECAN [Suspect]
     Indication: NEOPLASM
     Dosage: 4MG SINGLE DOSE
     Route: 048
     Dates: start: 20081028
  2. PAZOPANIB [Suspect]
     Indication: NEOPLASM
     Dosage: 800MG PER DAY
     Route: 048
     Dates: start: 20081029

REACTIONS (1)
  - HEPATITIS TOXIC [None]
